FAERS Safety Report 7389487-2 (Version None)
Quarter: 2011Q2

REPORT INFORMATION
  Report Type: 
  Country: None (occurrence: None)
  Receive Date: 20110401
  Receipt Date: 20110330
  Transmission Date: 20111010
  Serious: Yes (Hospitalization, Other)
  Sender: FDA-Public Use
  Company Number: BR-ELI_LILLY_AND_COMPANY-BR201012005460

PATIENT
  Sex: Female
  Weight: 69.5 kg

DRUGS (5)
  1. PACLITAXEL [Suspect]
     Indication: BREAST CANCER METASTATIC
     Dosage: 175 MG/M2, OTHER
     Route: 042
     Dates: start: 20100706
  2. AMITRIPTILINA [Concomitant]
     Dosage: UNK, UNKNOWN
     Route: 065
     Dates: end: 20100818
  3. OMEPRAZOLE [Concomitant]
     Dosage: UNK, UNKNOWN
     Route: 065
     Dates: end: 20090101
  4. GEMCITABINE HYDROCHLORIDE [Suspect]
     Indication: BREAST CANCER METASTATIC
     Dosage: 1250 MG/M2, OTHER
     Route: 042
     Dates: start: 20100706
  5. CODEX [Concomitant]
     Dosage: UNK, UNKNOWN
     Route: 065
     Dates: end: 20100501

REACTIONS (2)
  - BRONCHOPNEUMONIA [None]
  - ARRHYTHMIA SUPRAVENTRICULAR [None]
